FAERS Safety Report 11530113 (Version 1)
Quarter: 2015Q3

REPORT INFORMATION
  Report Type: Spontaneous
  Country: US (occurrence: US)
  Receive Date: 20150921
  Receipt Date: 20150921
  Transmission Date: 20151125
  Serious: No
  Sender: FDA-Public Use
  Company Number: US-GLAXOSMITHKLINE-US2015GSK105691

PATIENT
  Sex: Female

DRUGS (1)
  1. CARVEDILOL. [Suspect]
     Active Substance: CARVEDILOL
     Indication: LEFT VENTRICULAR DYSFUNCTION

REACTIONS (5)
  - Arthralgia [Unknown]
  - Myalgia [Unknown]
  - Rash pruritic [Unknown]
  - Chest pain [Unknown]
  - Abdominal pain upper [Unknown]
